FAERS Safety Report 10259861 (Version 1)
Quarter: 2014Q2

REPORT INFORMATION
  Report Type: Spontaneous
  Country: US (occurrence: US)
  Receive Date: 20140625
  Receipt Date: 20140625
  Transmission Date: 20141212
  Serious: Yes (Hospitalization)
  Sender: FDA-Public Use
  Company Number: US-GLAXOSMITHKLINE-A1078323A

PATIENT
  Age: 71 Year
  Sex: Male

DRUGS (5)
  1. CEFTIN [Suspect]
     Indication: PRODUCT USED FOR UNKNOWN INDICATION
     Route: 065
     Dates: start: 2014
  2. IBRUTINIB [Suspect]
     Indication: CHRONIC LYMPHOCYTIC LEUKAEMIA
     Dosage: 420MG PER DAY
     Route: 048
     Dates: start: 20140401
  3. ANTIBIOTICS [Suspect]
     Indication: PRODUCT USED FOR UNKNOWN INDICATION
     Route: 065
     Dates: start: 2014
  4. AVODART [Concomitant]
  5. LEXAPRO [Concomitant]

REACTIONS (5)
  - Clostridium difficile infection [Recovered/Resolved]
  - Oropharyngeal pain [Recovered/Resolved]
  - Hyperhidrosis [Recovered/Resolved]
  - Pyrexia [Recovered/Resolved]
  - Stomatitis [Not Recovered/Not Resolved]
